FAERS Safety Report 23441575 (Version 1)
Quarter: 2024Q1

REPORT INFORMATION
  Report Type: Spontaneous
  Country: US (occurrence: US)
  Receive Date: 20240125
  Receipt Date: 20240125
  Transmission Date: 20240410
  Serious: Yes (Other)
  Sender: FDA-Public Use
  Company Number: US-ELI_LILLY_AND_COMPANY-US202401013930

PATIENT
  Age: 73 Year
  Sex: Female

DRUGS (3)
  1. HUMULIN N [Suspect]
     Active Substance: INSULIN HUMAN
     Indication: Product used for unknown indication
     Dosage: 45 U, EACH MORNING
     Route: 065
     Dates: start: 2021
  2. HUMULIN N [Suspect]
     Active Substance: INSULIN HUMAN
     Dosage: 45 U, EACH EVENING
     Route: 065
     Dates: start: 2021
  3. HUMULIN N [Suspect]
     Active Substance: INSULIN HUMAN
     Dosage: 35 U, DAILY (LAST NIGHT)
     Route: 065

REACTIONS (1)
  - Blood glucose decreased [Unknown]

NARRATIVE: CASE EVENT DATE: 20240101
